FAERS Safety Report 22587372 (Version 1)
Quarter: 2023Q2

REPORT INFORMATION
  Report Type: Spontaneous
  Country: CN (occurrence: CN)
  Receive Date: 20230612
  Receipt Date: 20230612
  Transmission Date: 20230721
  Serious: Yes (Hospitalization, Other)
  Sender: FDA-Public Use
  Company Number: CN-HALEON-CNCH2023APC027403

PATIENT

DRUGS (1)
  1. IBUPROFEN [Suspect]
     Active Substance: IBUPROFEN
     Indication: Product used for unknown indication
     Dosage: 48 DF, QD
     Route: 048

REACTIONS (18)
  - Abdominal pain upper [Recovered/Resolved]
  - Renal impairment [Recovered/Resolved]
  - Gastric ulcer [Recovered/Resolved]
  - Erosive duodenitis [Recovered/Resolved]
  - Chronic gastritis [Recovered/Resolved]
  - Paraesthesia [Recovered/Resolved]
  - Blood pressure increased [Recovered/Resolved]
  - Hyperphagia [Recovered/Resolved]
  - Dizziness [Recovered/Resolved]
  - Fatigue [Recovered/Resolved]
  - Dyspepsia [Recovered/Resolved]
  - Nausea [Recovered/Resolved]
  - Retching [Recovered/Resolved]
  - Abdominal tenderness [Recovered/Resolved]
  - Mucosal hyperaemia [Recovered/Resolved]
  - C-reactive protein increased [Recovered/Resolved]
  - Hepatic function abnormal [Recovered/Resolved]
  - Overdose [Unknown]
